FAERS Safety Report 5285942-X (Version None)
Quarter: 2007Q2

REPORT INFORMATION
  Report Type: 
  Country: None (occurrence: None)
  Receive Date: 20070404
  Receipt Date: 20070326
  Transmission Date: 20071010
  Serious: No
  Sender: FDA-Public Use
  Company Number: PHBS2007JP04918

PATIENT
  Age: 10 Month
  Sex: Male

DRUGS (2)
  1. ZADITEN [Suspect]
     Route: 048
     Dates: start: 20070309
  2. BETNOVAL G [Concomitant]
     Dates: start: 20070309

REACTIONS (3)
  - AGITATION [None]
  - CRYING [None]
  - DYSSOMNIA [None]
